FAERS Safety Report 26028034 (Version 1)
Quarter: 2025Q4

REPORT INFORMATION
  Report Type: Spontaneous
  Country: US (occurrence: None)
  Receive Date: 20251111
  Receipt Date: 20251111
  Transmission Date: 20260117
  Serious: No
  Sender: FDA-CTU
  Company Number: None

PATIENT
  Age: 84 Year
  Sex: Female

DRUGS (1)
  1. LENALIDOMIDE [Suspect]
     Active Substance: LENALIDOMIDE
     Indication: Myelodysplastic syndrome
     Dosage: 2.5 MG EVERY OTHER  DAY 14 ORAL ?
     Route: 048
     Dates: start: 20250211

REACTIONS (2)
  - Pneumonia legionella [None]
  - Therapy cessation [None]

NARRATIVE: CASE EVENT DATE: 20250618
